FAERS Safety Report 6767270-6 (Version None)
Quarter: 2010Q2

REPORT INFORMATION
  Report Type: 
  Country: None (occurrence: None)
  Receive Date: 20100614
  Receipt Date: 20100610
  Transmission Date: 20101027
  Serious: Yes (Life-Threatening)
  Sender: FDA-Public Use
  Company Number: BE-ASTRAZENECA-2010SE27245

PATIENT
  Age: 21470 Day
  Sex: Female

DRUGS (6)
  1. SYMBICORT [Suspect]
     Indication: COUGH
     Dosage: TWO PUFFS
     Route: 055
     Dates: start: 20100603
  2. CRESTOR [Concomitant]
  3. EMCONCOR MITIS [Concomitant]
  4. ASAFLOW 80 [Concomitant]
  5. SEROXAT [Concomitant]
  6. METFORMAX [Concomitant]

REACTIONS (1)
  - ANAPHYLACTIC SHOCK [None]
